FAERS Safety Report 12173217 (Version 1)
Quarter: 2016Q1

REPORT INFORMATION
  Report Type: Spontaneous
  Country: BR (occurrence: BR)
  Receive Date: 20160311
  Receipt Date: 20160311
  Transmission Date: 20160526
  Serious: Yes (Other)
  Sender: FDA-Public Use
  Company Number: PHHY2015BR170466

PATIENT
  Age: 30 Year
  Sex: Female

DRUGS (1)
  1. DESOGESTREL SANDOZ [Suspect]
     Active Substance: DESOGESTREL
     Indication: ABDOMINAL PAIN
     Dosage: 75 UG, QD
     Route: 048
     Dates: start: 201511

REACTIONS (5)
  - Abortion [Unknown]
  - Pain [Unknown]
  - Maternal exposure during pregnancy [Unknown]
  - Menorrhagia [Unknown]
  - Abdominal pain [Unknown]

NARRATIVE: CASE EVENT DATE: 20160229
